FAERS Safety Report 6110401 (Version 3)
Quarter: 2019Q2

REPORT INFORMATION
  Report Type: Spontaneous
  Country: FR (occurrence: FR)
  Receive Date: 20060818
  Receipt Date: 20190530
  Transmission Date: 20190711
  Serious: Yes (Death)
  Sender: FDA-Public Use
  Company Number: FR-SANOFI-SYNTHELABO-A02200602028

PATIENT
  Age: 61 Year
  Sex: Male

DRUGS (8)
  1. GINKGO BILOBA [Suspect]
     Active Substance: GINKGO
     Dosage: 3 DF, QD
     Route: 048
     Dates: start: 20060426
  2. LORMETAZEPAM [Suspect]
     Active Substance: LORMETAZEPAM
     Dosage: 1 DF, UNK
     Route: 048
     Dates: start: 20060603
  3. CLONAZEPAM. [Suspect]
     Active Substance: CLONAZEPAM
     Dosage: 1 DF, QD
     Route: 048
     Dates: start: 20060419
  4. LORMETAZEPAM [Suspect]
     Active Substance: LORMETAZEPAM
     Dosage: 1 DF, QD
     Route: 048
     Dates: start: 20060603
  5. RISPERIDONE. [Suspect]
     Active Substance: RISPERIDONE
     Indication: BIPOLAR I DISORDER
     Dosage: UNK
     Route: 048
     Dates: start: 20060419
  6. RISPERIDONE. [Suspect]
     Active Substance: RISPERIDONE
     Indication: BIPOLAR I DISORDER
     Dosage: 1 DF, BID
     Route: 030
     Dates: start: 20060510
  7. PIASCLEDINE [GLYCINE MAX SEED OIL;PERSEA AMERICANA OIL] [Concomitant]
     Active Substance: AVOCADO OIL\SOYBEAN OIL
     Dosage: UNK
     Dates: start: 20060426
  8. ZOLPIDEM TARTRATE. [Suspect]
     Active Substance: ZOLPIDEM TARTRATE
     Dosage: UNK UNK,UNK
     Route: 048
     Dates: start: 20060603

REACTIONS (1)
  - Cardiac arrest [Fatal]

NARRATIVE: CASE EVENT DATE: 20060704
